FAERS Safety Report 10150114 (Version 2)
Quarter: 2014Q2

REPORT INFORMATION
  Report Type: Spontaneous
  Country: US (occurrence: US)
  Receive Date: 20140502
  Receipt Date: 20140626
  Transmission Date: 20141212
  Serious: Yes (Other)
  Sender: FDA-Public Use
  Company Number: US-JNJFOC-20140419607

PATIENT
  Sex: Female

DRUGS (7)
  1. REMICADE [Suspect]
     Indication: PSORIATIC ARTHROPATHY
     Route: 042
     Dates: start: 201303, end: 20131002
  2. PREDNISONE [Suspect]
     Indication: IGA NEPHROPATHY
     Route: 065
     Dates: end: 201405
  3. PREDNISONE [Suspect]
     Indication: IGA NEPHROPATHY
     Route: 065
     Dates: start: 201401
  4. ATENOLOL [Concomitant]
     Route: 065
  5. LANTUS INSULIN [Concomitant]
     Route: 065
  6. OMEPRAZOLE [Concomitant]
     Route: 065
  7. PLAQUENIL [Concomitant]
     Route: 065

REACTIONS (2)
  - IgA nephropathy [Recovering/Resolving]
  - Diabetes mellitus [Unknown]
